FAERS Safety Report 12411228 (Version 2)
Quarter: 2016Q3

REPORT INFORMATION
  Report Type: Spontaneous
  Country: US (occurrence: US)
  Receive Date: 20160527
  Receipt Date: 20160813
  Transmission Date: 20161109
  Serious: Yes (Hospitalization, Other)
  Sender: FDA-Public Use
  Company Number: US-BRISTOL-MYERS SQUIBB COMPANY-BMS-2016-039478

PATIENT
  Age: 62 Year
  Sex: Male

DRUGS (1)
  1. YERVOY [Suspect]
     Active Substance: IPILIMUMAB
     Indication: MALIGNANT MELANOMA
     Dosage: 1140 MG, UNK
     Route: 042
     Dates: start: 20140419, end: 20140419

REACTIONS (5)
  - Diarrhoea [Unknown]
  - Autoimmune hepatitis [Recovered/Resolved]
  - Rash [Not Recovered/Not Resolved]
  - Pyrexia [Unknown]
  - Atrial fibrillation [Recovering/Resolving]

NARRATIVE: CASE EVENT DATE: 201405
